FAERS Safety Report 12442940 (Version 1)
Quarter: 2016Q2

REPORT INFORMATION
  Report Type: Spontaneous
  Country: US (occurrence: US)
  Receive Date: 20160607
  Receipt Date: 20160607
  Transmission Date: 20160815
  Serious: No
  Sender: FDA-Public Use
  Company Number: US-ACTAVIS-2015-11610

PATIENT
  Sex: Female

DRUGS (3)
  1. OMEPRAZOLE (ACTAVIS LABORATORIES FL) [Suspect]
     Active Substance: OMEPRAZOLE
     Indication: ANAEMIA
     Dosage: UNK UNK, UNKNOWN
     Route: 048
     Dates: start: 20130802
  2. SERTRALINE HCL [Concomitant]
     Active Substance: SERTRALINE HYDROCHLORIDE
     Indication: ANXIETY
     Dosage: 100 MG, BID
     Route: 048
  3. BUSPIRONE HCL [Concomitant]
     Active Substance: BUSPIRONE HYDROCHLORIDE
     Indication: ANXIETY
     Dosage: HALF TO 1 TABLET TWICE DAILY AS NEEDED
     Route: 048
     Dates: start: 20111118

REACTIONS (1)
  - Adverse drug reaction [Unknown]
